FAERS Safety Report 5963705-7 (Version None)
Quarter: 2008Q4

REPORT INFORMATION
  Report Type: 
  Country: None (occurrence: None)
  Receive Date: 20081121
  Receipt Date: 20081121
  Transmission Date: 20090506
  Serious: Yes (Hospitalization)
  Sender: FDA-Public Use
  Company Number: None

PATIENT
  Sex: Female
  Weight: 56.8 kg

DRUGS (8)
  1. IRINOTECAN HYDROCHLORIDE [Suspect]
     Indication: GLIOBLASTOMA MULTIFORME
     Dosage: 100MG/M2 DAY 1, 8, 22, 29 IV
     Route: 042
     Dates: start: 20061106
  2. IRINOTECAN HYDROCHLORIDE [Suspect]
     Indication: GLIOBLASTOMA MULTIFORME
     Dosage: 100MG/M2 DAY 1, 8, 22, 29 IV
     Route: 042
     Dates: start: 20061113
  3. IRINOTECAN HYDROCHLORIDE [Suspect]
     Indication: GLIOBLASTOMA MULTIFORME
     Dosage: 100MG/M2 DAY 1, 8, 22, 29 IV
     Route: 042
     Dates: start: 20061127
  4. IRINOTECAN HYDROCHLORIDE [Suspect]
     Indication: GLIOBLASTOMA MULTIFORME
     Dosage: 100MG/M2 DAY 1, 8, 22, 29 IV
     Route: 042
     Dates: start: 20061204
  5. TEMODAR [Suspect]
     Indication: GLIOBLASTOMA MULTIFORME
     Dosage: 150MG/M2 DAYS 1-5 PO
     Route: 048
     Dates: start: 20061106, end: 20061110
  6. HYDROCHLOROTHIAZIDE [Concomitant]
  7. DEXAMETHASONE [Concomitant]
  8. ZANTAC [Concomitant]

REACTIONS (1)
  - PNEUMONIA [None]
